FAERS Safety Report 8327722-4 (Version None)
Quarter: 2012Q2

REPORT INFORMATION
  Report Type: 
  Country: None (occurrence: None)
  Receive Date: 20120502
  Receipt Date: 20120426
  Transmission Date: 20120825
  Serious: No
  Sender: FDA-Public Use
  Company Number: US-PFIZER INC-2012104612

PATIENT
  Sex: Female
  Weight: 58.05 kg

DRUGS (4)
  1. VALIUM [Concomitant]
     Dosage: UNK
  2. LYRICA [Suspect]
     Indication: PERIPHERAL NERVE INJURY
     Dosage: 50 MG, DAILY
     Dates: start: 20120411, end: 20120401
  3. VICODIN [Concomitant]
     Dosage: UNK
  4. LYRICA [Suspect]
     Dosage: 50 MG, 2X/DAY
     Dates: start: 20120401

REACTIONS (2)
  - CONSTIPATION [None]
  - HYPERSOMNIA [None]
